FAERS Safety Report 8507905-0 (Version None)
Quarter: 2012Q3

REPORT INFORMATION
  Report Type: 
  Country: None (occurrence: None)
  Receive Date: 20120713
  Receipt Date: 20120704
  Transmission Date: 20120928
  Serious: Yes (Hospitalization)
  Sender: FDA-Public Use
  Company Number: BR-US-EMD SERONO, INC.-7145328

PATIENT
  Sex: Female

DRUGS (3)
  1. ATENOLOL [Concomitant]
     Indication: PRODUCT USED FOR UNKNOWN INDICATION
  2. REBIF [Suspect]
     Indication: RELAPSING-REMITTING MULTIPLE SCLEROSIS
     Dates: start: 20101001
  3. PANTOPRAZOLE [Concomitant]
     Indication: PRODUCT USED FOR UNKNOWN INDICATION

REACTIONS (10)
  - WRONG TECHNIQUE IN DRUG USAGE PROCESS [None]
  - HEADACHE [None]
  - INJECTION SITE FIBROSIS [None]
  - HYPERTENSION [None]
  - CENTRAL NERVOUS SYSTEM LESION [None]
  - DIZZINESS [None]
  - BALANCE DISORDER [None]
  - INJECTION SITE NODULE [None]
  - DYSGRAPHIA [None]
  - SOMNOLENCE [None]
